FAERS Safety Report 10481423 (Version 1)
Quarter: 2014Q3

REPORT INFORMATION
  Report Type: Spontaneous
  Country: US (occurrence: US)
  Receive Date: 20140929
  Receipt Date: 20140929
  Transmission Date: 20150326
  Serious: No
  Sender: FDA-Public Use
  Company Number: US-PFIZER INC-2014265742

PATIENT
  Age: 16 Year
  Sex: Female

DRUGS (1)
  1. DEPO-PROVERA [Suspect]
     Active Substance: MEDROXYPROGESTERONE ACETATE
     Indication: CONTRACEPTION
     Dosage: 150 MG, EVERY 3 MONTHS
     Route: 030
     Dates: start: 20140826

REACTIONS (4)
  - Injection site pain [Unknown]
  - Injection site induration [Unknown]
  - Urticaria [Unknown]
  - Contusion [Unknown]

NARRATIVE: CASE EVENT DATE: 20140826
